FAERS Safety Report 6580018-3 (Version None)
Quarter: 2010Q1

REPORT INFORMATION
  Report Type: 
  Country: None (occurrence: None)
  Receive Date: 20100212
  Receipt Date: 20100205
  Transmission Date: 20100710
  Serious: Yes (Death)
  Sender: FDA-Public Use
  Company Number: BE-MERCK-1002BEL00006

PATIENT
  Age: 63 Year
  Sex: Female
  Weight: 54 kg

DRUGS (10)
  1. CANCIDAS [Suspect]
     Indication: FUNGAL INFECTION
     Route: 048
     Dates: start: 20090619, end: 20090619
  2. CANCIDAS [Suspect]
     Route: 048
     Dates: start: 20090620, end: 20090624
  3. MEROPENEM [Concomitant]
     Indication: BACTERIAL INFECTION
     Route: 042
     Dates: start: 20090605, end: 20090623
  4. SULFAMETHOXAZOLE AND TRIMETHOPRIM [Concomitant]
     Indication: BACTERIAL INFECTION
     Route: 065
     Dates: start: 20090619, end: 20090624
  5. VANCOMYCIN [Concomitant]
     Indication: BACTERIAL INFECTION
     Route: 041
     Dates: start: 20090619, end: 20090623
  6. CYCLOSPORINE [Concomitant]
     Route: 065
     Dates: start: 20090605, end: 20090624
  7. FLUCONAZOLE [Concomitant]
     Indication: PROPHYLAXIS
     Route: 048
     Dates: start: 20090220, end: 20090604
  8. AMPHOTERICIN B AND L-(ALPHA)-DIMYRISTOYLPHOSPHATIDYLCHOLINE AND L-(ALP [Concomitant]
     Indication: FUNGAL INFECTION
     Route: 041
     Dates: start: 20090609, end: 20090623
  9. VORICONAZOLE [Concomitant]
     Indication: FUNGAL INFECTION
     Route: 048
     Dates: start: 20090605, end: 20090606
  10. VORICONAZOLE [Concomitant]
     Route: 041
     Dates: start: 20090607, end: 20090608

REACTIONS (3)
  - CONDITION AGGRAVATED [None]
  - FUNGAL INFECTION [None]
  - ORGAN FAILURE [None]
